FAERS Safety Report 8566649-X (Version None)
Quarter: 2012Q3

REPORT INFORMATION
  Report Type: 
  Country: None (occurrence: None)
  Receive Date: 20120803
  Receipt Date: 20111116
  Transmission Date: 20120928
  Serious: No
  Sender: FDA-Public Use
  Company Number: US-ABBOTT-11P-163-0874873-00

PATIENT
  Sex: Female
  Weight: 74.91 kg

DRUGS (6)
  1. ATENOLOL [Concomitant]
     Indication: HYPERTENSION
  2. DIOVAN [Concomitant]
     Indication: HYPERTENSION
  3. NIASPAN [Suspect]
     Indication: BLOOD TRIGLYCERIDES INCREASED
     Dates: start: 20101101, end: 20101201
  4. NIASPAN [Suspect]
     Dosage: 1000 MG DAILY
     Dates: start: 20101201
  5. LIPITOR [Concomitant]
     Indication: BLOOD TRIGLYCERIDES INCREASED
  6. ASPIRIN [Concomitant]
     Indication: CARDIOVASCULAR EVENT PROPHYLAXIS

REACTIONS (2)
  - FLUSHING [None]
  - ABDOMINAL DISCOMFORT [None]
